FAERS Safety Report 5238000-4 (Version None)
Quarter: 2007Q1

REPORT INFORMATION
  Report Type: 
  Country: None (occurrence: None)
  Receive Date: 20070214
  Receipt Date: 20070206
  Transmission Date: 20070707
  Serious: Yes (Other)
  Sender: FDA-Public Use
  Company Number: JP-PFIZER INC-2006140003

PATIENT
  Sex: Male

DRUGS (5)
  1. NORVASC [Suspect]
     Dosage: DAILY DOSE:5MG
     Route: 048
  2. NORVASC [Suspect]
     Dosage: DAILY DOSE:2.5MG
     Route: 048
  3. CALCIUM [Concomitant]
     Route: 048
  4. COENZYME Q10 [Concomitant]
     Route: 048
  5. VASOLAN [Concomitant]
     Route: 048

REACTIONS (2)
  - GASTRIC CANCER [None]
  - NAUSEA [None]
